FAERS Safety Report 8461942-3 (Version None)
Quarter: 2012Q2

REPORT INFORMATION
  Report Type: 
  Country: None (occurrence: None)
  Receive Date: 20120625
  Receipt Date: 20120620
  Transmission Date: 20120825
  Serious: Yes (Life-Threatening)
  Sender: FDA-Public Use
  Company Number: CH-JNJFOC-20120610001

PATIENT
  Age: 25 Year
  Sex: Male

DRUGS (11)
  1. RISPERDAL [Suspect]
     Route: 048
     Dates: start: 20120209, end: 20120217
  2. LORAZEPAM [Suspect]
     Route: 048
     Dates: start: 20120305, end: 20120305
  3. RISPERDAL [Suspect]
     Route: 048
     Dates: start: 20120218, end: 20120306
  4. ESCITALOPRAM [Suspect]
     Indication: DEPRESSION
     Route: 048
     Dates: start: 20111215
  5. LORAZEPAM [Suspect]
     Indication: PRODUCT USED FOR UNKNOWN INDICATION
     Route: 048
     Dates: start: 20120309
  6. RISPERDAL [Suspect]
     Indication: DEPRESSION
     Route: 048
     Dates: start: 20120126, end: 20120208
  7. RISPERDAL [Suspect]
     Route: 048
     Dates: start: 20120307, end: 20120319
  8. LORAZEPAM [Suspect]
     Route: 048
     Dates: start: 20120310
  9. LORAZEPAM [Suspect]
     Route: 048
     Dates: start: 20120308
  10. SEROQUEL [Suspect]
     Indication: PRODUCT USED FOR UNKNOWN INDICATION
     Route: 048
     Dates: start: 20120306, end: 20120306
  11. RISPERDAL [Suspect]
     Route: 048
     Dates: start: 20120320, end: 20120328

REACTIONS (1)
  - SUICIDE ATTEMPT [None]
